FAERS Safety Report 14020134 (Version 1)
Quarter: 2017Q3

REPORT INFORMATION
  Report Type: Report from Study
  Country: IT (occurrence: IT)
  Receive Date: 20170928
  Receipt Date: 20170928
  Transmission Date: 20171128
  Serious: Yes (Other)
  Sender: FDA-Public Use
  Company Number: IT-MYLANLABS-2017M1059338

PATIENT
  Age: 63 Year
  Sex: Male

DRUGS (4)
  1. OXALIPLATIN. [Suspect]
     Active Substance: OXALIPLATIN
     Indication: COLON CANCER
     Dosage: UNK UNK, CYCLE
     Route: 042
     Dates: start: 20160404
  2. VECTIBIX [Suspect]
     Active Substance: PANITUMUMAB
     Indication: COLON CANCER
     Dosage: 384 MG, CYCLE (EVERY 2 WEEKS)
     Route: 042
     Dates: start: 20160404
  3. CALCIUM FOLINATE [Suspect]
     Active Substance: LEUCOVORIN CALCIUM
     Indication: COLON CANCER
     Dosage: CYCLICAL
     Route: 042
  4. FLUOROURACIL. [Suspect]
     Active Substance: FLUOROURACIL
     Indication: COLON CANCER
     Dosage: CYCLICAL
     Route: 042
     Dates: start: 20160404

REACTIONS (6)
  - Neutropenia [Unknown]
  - Epistaxis [Unknown]
  - Nail disorder [Unknown]
  - Skin toxicity [Unknown]
  - Nausea [Unknown]
  - Thrombocytopenia [Unknown]

NARRATIVE: CASE EVENT DATE: 20160411
